FAERS Safety Report 10260335 (Version 1)
Quarter: 2014Q2

REPORT INFORMATION
  Report Type: Spontaneous
  Country: US (occurrence: US)
  Receive Date: 20140625
  Receipt Date: 20140625
  Transmission Date: 20141212
  Serious: No
  Sender: FDA-Public Use
  Company Number: US-SA-2014SA071904

PATIENT
  Age: 54 Year
  Sex: Female

DRUGS (17)
  1. AUBAGIO [Suspect]
     Indication: PRODUCT USED FOR UNKNOWN INDICATION
     Route: 048
     Dates: start: 20140212
  2. VESICARE [Concomitant]
  3. SINGULAIR [Concomitant]
  4. METFORMIN [Concomitant]
  5. DICLOFENAC [Concomitant]
  6. OMEPRAZOLE [Concomitant]
  7. CITALOPRAM [Concomitant]
  8. LOESTRIN [Concomitant]
  9. MULTIVITAMINS [Concomitant]
  10. VITAMIN D [Concomitant]
  11. CALCIUM CITRATE [Concomitant]
  12. SUMATRIPTAN [Concomitant]
  13. DIAZEPAM [Concomitant]
  14. HYDROCODONE W/APAP [Concomitant]
  15. ZONISAMIDE [Concomitant]
  16. TIZANIDINE [Concomitant]
  17. ROPINIROLE [Concomitant]

REACTIONS (1)
  - Diarrhoea [Unknown]
